FAERS Safety Report 10950019 (Version 4)
Quarter: 2016Q4

REPORT INFORMATION
  Report Type: Spontaneous
  Country: US (occurrence: US)
  Receive Date: 20150324
  Receipt Date: 20161221
  Transmission Date: 20170206
  Serious: Yes (Hospitalization, Other)
  Sender: FDA-Public Use
  Company Number: US-TMC-CABO-13003294

PATIENT
  Age: 13 Year
  Sex: Female
  Weight: 37.3 kg

DRUGS (17)
  1. COMETRIQ [Suspect]
     Active Substance: CABOZANTINIB S-MALATE
     Dosage: 60 MG, QD
     Route: 048
     Dates: start: 20130923, end: 20131004
  2. COMETRIQ [Suspect]
     Active Substance: CABOZANTINIB S-MALATE
     Dosage: 20 MG, MON-WED, FRI, SAT
     Route: 048
     Dates: start: 2013, end: 2013
  3. NEURONTIN [Concomitant]
     Active Substance: GABAPENTIN
  4. LEDYRXINE [Concomitant]
  5. OXYCODONE [Concomitant]
     Active Substance: OXYCODONE
  6. CYMBALTA [Concomitant]
     Active Substance: DULOXETINE HYDROCHLORIDE
  7. COMETRIQ [Suspect]
     Active Substance: CABOZANTINIB S-MALATE
     Dosage: 40 MG, THURS/SUN
     Route: 048
     Dates: start: 2013, end: 2013
  8. SULFAMETHOXAZOLE [Concomitant]
     Active Substance: SULFAMETHOXAZOLE
  9. COMETRIQ [Suspect]
     Active Substance: CABOZANTINIB S-MALATE
     Indication: BONE CANCER
     Dosage: 60 MG, QD
     Route: 048
     Dates: start: 20130728, end: 20130919
  10. LYRICA [Concomitant]
     Active Substance: PREGABALIN
  11. COMETRIQ [Suspect]
     Active Substance: CABOZANTINIB S-MALATE
     Dosage: 20 MG QD
     Route: 048
     Dates: start: 2013, end: 2013
  12. LO LOESTRIN FE [Concomitant]
     Active Substance: ETHINYL ESTRADIOL\NORETHINDRONE ACETATE
  13. OXYCONTIN [Concomitant]
     Active Substance: OXYCODONE HYDROCHLORIDE
  14. COMETRIQ [Suspect]
     Active Substance: CABOZANTINIB S-MALATE
     Dosage: 20 MG, QD
     Route: 048
     Dates: start: 20140210, end: 20160901
  15. DEXAMETHASONE. [Concomitant]
     Active Substance: DEXAMETHASONE
  16. LEVOTHYROXINE. [Concomitant]
     Active Substance: LEVOTHYROXINE
  17. LUNESTA [Concomitant]
     Active Substance: ESZOPICLONE

REACTIONS (12)
  - Abdominal pain upper [Unknown]
  - Brain herniation [Unknown]
  - Off label use [Unknown]
  - Decreased appetite [Unknown]
  - Bone disorder [Unknown]
  - Neoplasm [Unknown]
  - Headache [Not Recovered/Not Resolved]
  - Malaise [Unknown]
  - Gastroenteritis viral [Unknown]
  - Dental caries [Unknown]
  - Nausea [Unknown]
  - Tooth disorder [Unknown]

NARRATIVE: CASE EVENT DATE: 20130916
